FAERS Safety Report 20877064 (Version 1)
Quarter: 2022Q2

REPORT INFORMATION
  Report Type: Spontaneous
  Country: US (occurrence: US)
  Receive Date: 20220526
  Receipt Date: 20220526
  Transmission Date: 20220721
  Serious: No
  Sender: FDA-Public Use
  Company Number: US-BRISTOL-MYERS SQUIBB COMPANY-2022-034264

PATIENT
  Age: 78 Year
  Sex: Female
  Weight: 50.6 kg

DRUGS (1)
  1. REVLIMID [Suspect]
     Active Substance: LENALIDOMIDE
     Indication: Plasma cell myeloma
     Dosage: EVERY OTHER DAY DAYS 1-21 EVERY 28 DAYS
     Route: 048
     Dates: start: 20220314

REACTIONS (4)
  - Nausea [Unknown]
  - Mouth ulceration [Recovered/Resolved]
  - Memory impairment [Unknown]
  - Tachycardia [Unknown]

NARRATIVE: CASE EVENT DATE: 20220427
